FAERS Safety Report 7176416-X (Version None)
Quarter: 2010Q4

REPORT INFORMATION
  Report Type: 
  Country: None (occurrence: None)
  Receive Date: 20101220
  Receipt Date: 20100915
  Transmission Date: 20110411
  Serious: Yes (Other)
  Sender: FDA-Public Use
  Company Number: JP-PFIZER INC-2010116918

PATIENT
  Age: 52 Year
  Sex: Female

DRUGS (6)
  1. HYSRON-H [Suspect]
     Indication: OFF LABEL USE
     Dosage: 200 MG, 2X/DAY
     Route: 048
     Dates: start: 19920904, end: 20090811
  2. HYSRON-H [Suspect]
     Indication: LYMPHANGIOLEIOMYOMATOSIS
  3. SUPRECUR [Suspect]
     Indication: LYMPHANGIOLEIOMYOMATOSIS
     Dosage: 1 DF, 3X/DAY
     Route: 045
     Dates: start: 19920919, end: 19950901
  4. SUPRECUR [Suspect]
     Dosage: 1 DF, 3X/DAY
     Route: 045
     Dates: start: 19991101, end: 20090811
  5. NASANYL [Concomitant]
     Indication: LYMPHANGIOLEIOMYOMATOSIS
     Dosage: 1 DF, 3X/DAY
     Route: 045
     Dates: start: 19950901, end: 19951101
  6. NASANYL [Concomitant]
     Dosage: 1 DF, 2X/DAY
     Route: 045
     Dates: start: 19951101, end: 19991101

REACTIONS (1)
  - MENINGIOMA [None]
